FAERS Safety Report 15105575 (Version 2)
Quarter: 2018Q3

REPORT INFORMATION
  Report Type: Report from Study
  Country: JP (occurrence: JP)
  Receive Date: 20180704
  Receipt Date: 20180730
  Transmission Date: 20181010
  Serious: Yes (Hospitalization, Other)
  Sender: FDA-Public Use
  Company Number: JP-BRISTOL-MYERS SQUIBB COMPANY-BMS-2018-060629

PATIENT
  Age: 84 Year
  Sex: Female

DRUGS (1)
  1. ABATACEPT [Suspect]
     Active Substance: ABATACEPT
     Indication: RHEUMATOID ARTHRITIS
     Dosage: 125 MG, QWK
     Route: 058
     Dates: start: 20171208

REACTIONS (2)
  - Lower gastrointestinal haemorrhage [Recovering/Resolving]
  - Pneumonia [Unknown]

NARRATIVE: CASE EVENT DATE: 20180304
